FAERS Safety Report 13400014 (Version 1)
Quarter: 2017Q2

REPORT INFORMATION
  Report Type: Spontaneous
  Country: US (occurrence: US)
  Receive Date: 20170404
  Receipt Date: 20170404
  Transmission Date: 20170830
  Serious: Yes (Hospitalization)
  Sender: FDA-Public Use
  Company Number: None

PATIENT
  Age: 72 Year
  Sex: Female
  Weight: 118 kg

DRUGS (1)
  1. 5-AMINOLEVULINIC ACID 10 OR 20MG/KG DUSA PHARMACEUTICALS [Suspect]
     Active Substance: AMINOLEVULINIC ACID
     Indication: GLIOBLASTOMA
     Dosage: 4720 MG 2 HOURS PRESURGERY ORAL
     Route: 048
     Dates: start: 20170221

REACTIONS (14)
  - Muscle twitching [None]
  - Agitation [None]
  - Metabolic encephalopathy [None]
  - Atelectasis [None]
  - Aggression [None]
  - Urinary tract infection [None]
  - Partial seizures [None]
  - Aphasia [None]
  - Pyrexia [None]
  - Cerebral infarction [None]
  - Dysphagia [None]
  - Delirium [None]
  - Pain in extremity [None]
  - Insomnia [None]

NARRATIVE: CASE EVENT DATE: 20170224
